FAERS Safety Report 20560991 (Version 1)
Quarter: 2022Q1

REPORT INFORMATION
  Report Type: Spontaneous
  Country: US (occurrence: US)
  Receive Date: 20220307
  Receipt Date: 20220307
  Transmission Date: 20220423
  Serious: Yes (Hospitalization)
  Sender: FDA-Public Use
  Company Number: US-GW PHARMA-202202USGW01063

PATIENT
  Sex: Female
  Weight: 18.594 kg

DRUGS (1)
  1. EPIDIOLEX [Suspect]
     Active Substance: CANNABIDIOL
     Indication: Lennox-Gastaut syndrome
     Dosage: 560 MG, UNK
     Route: 048
     Dates: start: 201903

REACTIONS (2)
  - Seizure [Unknown]
  - Immunoglobulin therapy [Unknown]
